FAERS Safety Report 6800632-7 (Version None)
Quarter: 2010Q2

REPORT INFORMATION
  Report Type: 
  Country: None (occurrence: None)
  Receive Date: 20100625
  Receipt Date: 20100625
  Transmission Date: 20101027
  Serious: Yes (Hospitalization, Other)
  Sender: FDA-Public Use
  Company Number: None

PATIENT
  Sex: Female
  Weight: 61.2356 kg

DRUGS (2)
  1. YAZ [Suspect]
     Indication: CONTRACEPTION
     Dosage: 1 TABLET ONCE A DAY PO
     Route: 048
     Dates: start: 20070301, end: 20100624
  2. YASMIN [Suspect]
     Indication: PREMENSTRUAL SYNDROME
     Dosage: 1 TABLET ONCE A DAY PO
     Route: 048
     Dates: start: 20050301, end: 20070301

REACTIONS (2)
  - CHOLECYSTITIS [None]
  - CHOLELITHIASIS [None]
